FAERS Safety Report 21072773 (Version 1)
Quarter: 2022Q3

REPORT INFORMATION
  Report Type: Report from Study
  Country: US (occurrence: US)
  Receive Date: 20220712
  Receipt Date: 20220712
  Transmission Date: 20221026
  Serious: No
  Sender: FDA-Public Use
  Company Number: US-INCYTE CORPORATION-2022IN005493

PATIENT

DRUGS (2)
  1. JAKAFI [Suspect]
     Active Substance: RUXOLITINIB
     Indication: Polycythaemia vera
     Dosage: 5 MILLIGRAM, BID
     Route: 048
     Dates: start: 202205
  2. JAKAFI [Suspect]
     Active Substance: RUXOLITINIB
     Dosage: UNK, BID
     Route: 048
     Dates: start: 20220517, end: 20220520

REACTIONS (10)
  - Feeling abnormal [Unknown]
  - Drug intolerance [Unknown]
  - Visual impairment [Unknown]
  - Sensation of foreign body [Unknown]
  - Oesophagitis [Unknown]
  - Abdominal pain upper [Unknown]
  - Back pain [Unknown]
  - Musculoskeletal pain [Unknown]
  - Dysphonia [Unknown]
  - Headache [Not Recovered/Not Resolved]
